FAERS Safety Report 7556760-4 (Version None)
Quarter: 2011Q2

REPORT INFORMATION
  Report Type: 
  Country: None (occurrence: None)
  Receive Date: 20110620
  Receipt Date: 20110607
  Transmission Date: 20111010
  Serious: Yes (Hospitalization, Other)
  Sender: FDA-Public Use
  Company Number: FR-ELI_LILLY_AND_COMPANY-FR201106001671

PATIENT
  Sex: Male

DRUGS (4)
  1. ZYPREXA [Suspect]
     Indication: ABNORMAL BEHAVIOUR
     Dosage: 10 MG, BID
     Route: 048
     Dates: start: 20110125, end: 20110202
  2. TERCIAN [Concomitant]
     Indication: ABNORMAL BEHAVIOUR
     Dosage: UNK UNK, QD
     Route: 048
     Dates: start: 20110131
  3. ZYRTEC [Concomitant]
     Indication: RHINITIS ALLERGIC
     Dosage: 10 MG, QD
     Route: 048
     Dates: start: 20110131, end: 20110202
  4. CLONAZEPAM [Concomitant]
     Indication: ABNORMAL BEHAVIOUR
     Dosage: UNK, QD
     Route: 048
     Dates: start: 20110131

REACTIONS (3)
  - PATHOLOGICAL GAMBLING [None]
  - DEPRESSION [None]
  - CYTOLYTIC HEPATITIS [None]
